FAERS Safety Report 13563774 (Version 1)
Quarter: 2017Q2

REPORT INFORMATION
  Report Type: Spontaneous
  Country: US (occurrence: US)
  Receive Date: 20170519
  Receipt Date: 20170519
  Transmission Date: 20170830
  Serious: Yes (Hospitalization)
  Sender: FDA-Public Use
  Company Number: None

PATIENT
  Age: 53 Year
  Sex: Male

DRUGS (7)
  1. WAL-ACT [Concomitant]
     Active Substance: PSEUDOEPHEDRINE HYDROCHLORIDE\TRIPROLIDINE HYDROCHLORIDE
  2. IPRATROPIUM [Concomitant]
     Active Substance: IPRATROPIUM
  3. ACETYLCYST [Concomitant]
  4. VALIUM [Concomitant]
     Active Substance: DIAZEPAM
  5. PRILOSEC [Concomitant]
     Active Substance: OMEPRAZOLE MAGNESIUM
  6. BACLOFEN. [Concomitant]
     Active Substance: BACLOFEN
  7. TOBRAMYCIN 300MG/5ML [Suspect]
     Active Substance: TOBRAMYCIN
     Indication: PSEUDOMONAS INFECTION
     Route: 055
     Dates: start: 20170412

REACTIONS (5)
  - Head titubation [None]
  - Tinnitus [None]
  - Blood sodium decreased [None]
  - Urinary tract infection [None]
  - Nephrolithiasis [None]

NARRATIVE: CASE EVENT DATE: 201704
